FAERS Safety Report 7006929-2 (Version None)
Quarter: 2010Q3

REPORT INFORMATION
  Report Type: 
  Country: None (occurrence: None)
  Receive Date: 20100922
  Receipt Date: 20100917
  Transmission Date: 20110219
  Serious: Yes (Life-Threatening, Hospitalization)
  Sender: FDA-Public Use
  Company Number: DE-JNJFOC-20100904680

PATIENT
  Sex: Male
  Weight: 105 kg

DRUGS (2)
  1. SEMPERA [Suspect]
     Indication: FUNGAL INFECTION
     Dosage: PULSE THERAPY- 3 CYCLES EVERY 7 DAYS WITH ALWAYS 3 WEEKS BREAK
     Route: 048
  2. LISINOPRIL [Suspect]
     Indication: HYPERTENSION
     Route: 048

REACTIONS (2)
  - EOSINOPHILIC PNEUMONIA CHRONIC [None]
  - RESTRICTIVE PULMONARY DISEASE [None]
